FAERS Safety Report 18847147 (Version 1)
Quarter: 2021Q1

REPORT INFORMATION
  Report Type: Spontaneous
  Country: US (occurrence: US)
  Receive Date: 20210204
  Receipt Date: 20210204
  Transmission Date: 20210419
  Serious: No
  Sender: FDA-Public Use
  Company Number: US-PFIZER INC-2021088136

PATIENT
  Age: 55 Year
  Sex: Female
  Weight: 52.61 kg

DRUGS (1)
  1. LYRICA [Suspect]
     Active Substance: PREGABALIN
     Indication: OCCIPITAL NEURALGIA
     Dosage: UNK, 3X/DAY

REACTIONS (2)
  - Somnolence [Unknown]
  - Product dose omission issue [Unknown]
